FAERS Safety Report 5448005-6 (Version None)
Quarter: 2007Q3

REPORT INFORMATION
  Report Type: 
  Country: None (occurrence: None)
  Receive Date: 20070910
  Receipt Date: 20070821
  Transmission Date: 20080115
  Serious: No
  Sender: FDA-Public Use
  Company Number: US-BOEHRINGER INGELHEIM PHARMACEUTICALS, INC.-2007-BP-19638BP

PATIENT
  Age: 68 Year
  Sex: Female

DRUGS (5)
  1. ZANTAC 75 [Suspect]
     Indication: DYSPEPSIA
     Route: 048
     Dates: start: 20070801
  2. ZANTAC 75 [Suspect]
  3. NEXIUM [Concomitant]
  4. AMBIEN [Concomitant]
  5. PAXIL [Concomitant]

REACTIONS (3)
  - FEELING HOT [None]
  - ORAL CANDIDIASIS [None]
  - TINNITUS [None]
